FAERS Safety Report 5679739-6 (Version None)
Quarter: 2008Q1

REPORT INFORMATION
  Report Type: 
  Country: None (occurrence: None)
  Receive Date: 20080324
  Receipt Date: 20080317
  Transmission Date: 20080703
  Serious: Yes (Other)
  Sender: FDA-Public Use
  Company Number: CHPA2008US04885

PATIENT
  Age: 18 Year
  Sex: Female

DRUGS (1)
  1. EX-LAX MAX STR LAX PILLS SENNA (NCH)(SENNA GLYCOSIDES (CA SALTS OF PUR [Suspect]
     Indication: CONSTIPATION
     Dosage: 100 MG, QW, ORAL; 100 MG, QOD, ORAL
     Route: 048
     Dates: start: 20080201

REACTIONS (3)
  - DRUG DEPENDENCE [None]
  - INTENTIONAL DRUG MISUSE [None]
  - NO ADVERSE EVENT [None]
